FAERS Safety Report 6591260-X (Version None)
Quarter: 2010Q1

REPORT INFORMATION
  Report Type: 
  Country: None (occurrence: None)
  Receive Date: 20100219
  Receipt Date: 20100216
  Transmission Date: 20100710
  Serious: Yes (Death, Hospitalization)
  Sender: FDA-Public Use
  Company Number: GB-WYE-G05580010

PATIENT
  Sex: Male

DRUGS (2)
  1. GEMTUZUMAB OZOGAMICIN [Suspect]
     Indication: ACUTE MYELOID LEUKAEMIA
     Dosage: UNKNOWN
     Dates: start: 20091207, end: 20091216
  2. ARA-C [Suspect]
     Dosage: UNKNOWN
     Dates: start: 20091207, end: 20091216

REACTIONS (2)
  - CEREBRAL HAEMORRHAGE [None]
  - NEUTROPENIC SEPSIS [None]
